FAERS Safety Report 18561175 (Version 3)
Quarter: 2021Q1

REPORT INFORMATION
  Report Type: Report from Study
  Country: BR (occurrence: BR)
  Receive Date: 20201130
  Receipt Date: 20210303
  Transmission Date: 20210419
  Serious: Yes (Other)
  Sender: FDA-Public Use
  Company Number: BR-TAKEDA-BR201901703

PATIENT
  Age: 23 Year
  Sex: Female
  Weight: 48 kg

DRUGS (11)
  1. BUSCOPAN [Concomitant]
     Active Substance: BUTYLSCOPOLAMINE BROMIDE
     Indication: PAIN
     Dosage: UNK
     Route: 065
  2. NEOZINE [CETIRIZINE HYDROCHLORIDE] [Concomitant]
     Indication: INSOMNIA
     Dosage: UNK
     Route: 065
  3. IDURSULFASE [Suspect]
     Active Substance: IDURSULFASE
     Indication: MUCOPOLYSACCHARIDOSIS II
     Dosage: UNK
     Route: 042
  4. HUNTERASE [Concomitant]
     Indication: PRODUCT USED FOR UNKNOWN INDICATION
     Dosage: UNK
     Route: 065
  5. CARBAMAZEPINE. [Concomitant]
     Active Substance: CARBAMAZEPINE
     Indication: SEIZURE
     Dosage: 200 MILLIGRAM
     Route: 065
  6. OMEPRAZOLE. [Concomitant]
     Active Substance: OMEPRAZOLE
     Dosage: 200 MILLIGRAM, Q12H
     Route: 065
  7. IDURSULFASE [Suspect]
     Active Substance: IDURSULFASE
     Dosage: UNK
     Route: 042
     Dates: start: 20201001
  8. GAVILAX [Concomitant]
     Active Substance: POLYETHYLENE GLYCOL 3350
     Indication: BOWEL MOVEMENT IRREGULARITY
     Dosage: UNK
     Route: 065
  9. GUTTALAX [Concomitant]
     Indication: BOWEL MOVEMENT IRREGULARITY
     Dosage: UNK UNK, QD
     Route: 065
  10. BROMOPRIDE [Concomitant]
     Active Substance: BROMOPRIDE
     Indication: GASTRITIS
     Dosage: 200 MILLIGRAM, Q12H
     Route: 065
  11. SIMETHICONE (DIMETHICONE) [Concomitant]
     Active Substance: DIMETHICONE
     Indication: BOWEL MOVEMENT IRREGULARITY
     Dosage: UNK UNK, QD
     Route: 065

REACTIONS (14)
  - Sinusitis [Unknown]
  - Rhinitis [Unknown]
  - Lung disorder [Unknown]
  - Pyrexia [Unknown]
  - Product use issue [Unknown]
  - Mental disorder [Unknown]
  - Pneumonia [Unknown]
  - Oxygen saturation abnormal [Unknown]
  - Inappropriate schedule of product administration [Unknown]
  - Oxygen saturation decreased [Recovered/Resolved]
  - Bedridden [Unknown]
  - Bronchitis [Unknown]
  - Bronchospasm [Unknown]
  - Allergic respiratory symptom [Unknown]

NARRATIVE: CASE EVENT DATE: 202010
